FAERS Safety Report 7469600-9 (Version None)
Quarter: 2011Q2

REPORT INFORMATION
  Report Type: 
  Country: None (occurrence: None)
  Receive Date: 20110510
  Receipt Date: 20081215
  Transmission Date: 20111010
  Serious: Yes (Other)
  Sender: FDA-Public Use
  Company Number: US-BAYER-200840440NA

PATIENT
  Age: 57 Year
  Sex: Male
  Weight: 77 kg

DRUGS (14)
  1. CARTIA XT [Concomitant]
     Dosage: 300 MG, UNK
     Route: 048
  2. CEFUROXIME [Concomitant]
     Dosage: 1.5 G, UNK
  3. LIDOCAINE [Concomitant]
     Dosage: 100 MG, UNK
     Route: 042
     Dates: start: 20020102, end: 20020102
  4. LASIX [Concomitant]
     Dosage: 20 MG, UNK
     Route: 042
  5. EPINEPHRINE [Concomitant]
     Dosage: UNK
     Route: 042
     Dates: start: 20020102, end: 20020102
  6. LIPITOR [Concomitant]
  7. FRESH FROZEN PLASMA [Concomitant]
     Dosage: 2 U, UNK
     Dates: start: 20020102
  8. TRASYLOL [Suspect]
     Indication: CORONARY ARTERY BYPASS
     Route: 042
     Dates: start: 20020102
  9. NITROGLYCERIN [Concomitant]
     Dosage: UNK
     Route: 042
     Dates: start: 20020102, end: 20020102
  10. NEO SYNEPHRIN [Concomitant]
     Dosage: UNK
     Route: 042
     Dates: start: 20020102, end: 20020102
  11. HEPARIN [Concomitant]
     Dosage: 30000 U, UNK
     Route: 042
     Dates: start: 20020102, end: 20020102
  12. PROTAMINE [Concomitant]
     Dosage: 400 MG, UNK
     Route: 042
     Dates: start: 20020102, end: 20020102
  13. PLATELETS [Concomitant]
     Dosage: 900 ML, UNK
     Dates: start: 20020102
  14. CRYOPRECIPITATES [Concomitant]

REACTIONS (5)
  - UNEVALUABLE EVENT [None]
  - INJURY [None]
  - PAIN [None]
  - RENAL FAILURE ACUTE [None]
  - RENAL FAILURE [None]
